FAERS Safety Report 22333276 (Version 2)
Quarter: 2024Q1

REPORT INFORMATION
  Report Type: Spontaneous
  Country: US (occurrence: US)
  Receive Date: 20230517
  Receipt Date: 20240104
  Transmission Date: 20240410
  Serious: Yes (Death)
  Sender: FDA-Public Use
  Company Number: US-PFIZER INC-PV202300086999

PATIENT
  Age: 67 Year
  Sex: Female

DRUGS (2)
  1. OXBRYTA [Suspect]
     Active Substance: VOXELOTOR
     Indication: Sickle cell disease
     Dosage: 1000 MG, 1X/DAY
     Route: 048
     Dates: start: 20230309
  2. OXBRYTA [Suspect]
     Active Substance: VOXELOTOR
     Dosage: 500 MG

REACTIONS (2)
  - Death [Fatal]
  - Constipation [Unknown]

NARRATIVE: CASE EVENT DATE: 20231226
